FAERS Safety Report 5573709-4 (Version None)
Quarter: 2007Q4

REPORT INFORMATION
  Report Type: 
  Country: None (occurrence: None)
  Receive Date: 20071220
  Receipt Date: 20071211
  Transmission Date: 20080405
  Serious: Yes (Hospitalization)
  Sender: FDA-Public Use
  Company Number: 2007-05692

PATIENT
  Age: 76 Year
  Sex: Female

DRUGS (26)
  1. HYDROCODONE BITARTRATE/ACETAMINOPHEN 5/500 (WATSON LABORATORIES)(HYDRO [Suspect]
     Indication: PAIN
     Dosage: PRN, ORAL
     Route: 048
     Dates: start: 20070121, end: 20070609
  2. PROPOXYPHENE HYDROCHLORIDE/ACETAMINOPHEN 65/650 (WATSON LABORATORIES)( [Suspect]
     Indication: PAIN
     Dosage: PRN, ORAL
     Route: 048
     Dates: start: 19760101, end: 20070609
  3. LORAZEPAM [Suspect]
     Indication: ANXIETY
     Dosage: 0.5 - 1.0 MG, PRN, ORAL
     Route: 048
     Dates: start: 20070217, end: 20070609
  4. SPIRONOLACTONE [Suspect]
     Indication: HYPERTENSION
     Dosage: 25 MG, DAILY, ORAL
     Route: 048
     Dates: start: 20070328, end: 20070609
  5. FUROSEMIDE [Suspect]
     Indication: HYPERTENSION
     Dosage: 40 MG, PRN, ORAL
     Route: 048
     Dates: start: 20070123
  6. INVESTIGATIONAL DRUG [Concomitant]
  7. OCUVITE (TOCOPHEROL, RETINOL) [Concomitant]
  8. ALPRAZOLAM [Concomitant]
  9. ARTIFICIAL TEARS [Concomitant]
  10. DIMENHYDRINATE [Concomitant]
  11. DOCUSATE SODIUM [Concomitant]
  12. ALBUTEROL [Concomitant]
  13. ASPIRIN [Concomitant]
  14. NEXIUM [Concomitant]
  15. FERROUS SULFATE TAB [Concomitant]
  16. ZOCOR [Concomitant]
  17. MAALOX (ALUMINIUM HYDROXIDE GEL) [Concomitant]
  18. MILK OF MAGNESIA [Concomitant]
  19. LISINOPRIL [Concomitant]
  20. POTASSIUM CHLORIDE [Concomitant]
  21. PROZAC [Concomitant]
  22. SEROQUEL [Concomitant]
  23. METFORMIN [Concomitant]
  24. ALEVE [Concomitant]
  25. LUNESTA [Concomitant]
  26. METOPROLOL TARTRATE [Concomitant]

REACTIONS (17)
  - ADJUSTMENT DISORDER [None]
  - ANXIETY [None]
  - ASTHENIA [None]
  - ATAXIA [None]
  - BACK PAIN [None]
  - BRADYCARDIA [None]
  - COORDINATION ABNORMAL [None]
  - DEPRESSION [None]
  - DIZZINESS [None]
  - DYSARTHRIA [None]
  - ELECTROCARDIOGRAM QRS COMPLEX PROLONGED [None]
  - FALL [None]
  - GAIT DISTURBANCE [None]
  - MEDICATION ERROR [None]
  - ORAL INTAKE REDUCED [None]
  - OSTEOARTHRITIS [None]
  - URINARY TRACT INFECTION [None]
